FAERS Safety Report 8947023 (Version 1)
Quarter: 2012Q4

REPORT INFORMATION
  Report Type: 
  Country: US (occurrence: US)
  Receive Date: 20121205
  Receipt Date: 20121205
  Transmission Date: 20130627
  Serious: No
  Sender: FDA-Public Use
  Company Number: US-ASTRAZENECA-2012SE87807

PATIENT
  Sex: Male

DRUGS (3)
  1. NEXIUM [Suspect]
     Indication: GASTRITIS EROSIVE
     Route: 048
  2. NEXIUM [Suspect]
     Indication: GASTRITIS EROSIVE
     Route: 048
  3. PRILOSEC [Suspect]
     Indication: GASTRITIS EROSIVE
     Route: 048

REACTIONS (1)
  - Barrett^s oesophagus [Unknown]
